FAERS Safety Report 7005287-7 (Version None)
Quarter: 2010Q3

REPORT INFORMATION
  Report Type: 
  Country: None (occurrence: None)
  Receive Date: 20100920
  Receipt Date: 20100920
  Transmission Date: 20110219
  Serious: Yes (Hospitalization)
  Sender: FDA-Public Use
  Company Number: None

PATIENT
  Sex: Male
  Weight: 105.2345 kg

DRUGS (4)
  1. SUNITINIB MALATE [Suspect]
     Indication: RENAL CANCER
     Dosage: 50MG DAILY CONTINUOUS
     Dates: start: 20100217, end: 20100805
  2. LANTUS [Concomitant]
  3. CORTEF [Concomitant]
  4. FLUDROCORTISONE [Concomitant]

REACTIONS (4)
  - ATRIAL FIBRILLATION [None]
  - HYPOTENSION [None]
  - POST PROCEDURAL COMPLICATION [None]
  - SEPSIS [None]
